FAERS Safety Report 9692837 (Version 1)
Quarter: 2013Q4

REPORT INFORMATION
  Report Type: Spontaneous
  Country: US (occurrence: None)
  Receive Date: 20131115
  Receipt Date: 20131115
  Transmission Date: 20140711
  Serious: No
  Sender: FDA-Public Use
  Company Number: None

PATIENT
  Age: 93 Year
  Sex: 0

DRUGS (1)
  1. ZYTIGA 250MG [Suspect]
     Route: 048

REACTIONS (1)
  - Malaise [None]
